FAERS Safety Report 7938241-9 (Version None)
Quarter: 2011Q4

REPORT INFORMATION
  Report Type: 
  Country: None (occurrence: None)
  Receive Date: 20111123
  Receipt Date: 20111115
  Transmission Date: 20120403
  Serious: Yes (Other)
  Sender: FDA-Public Use
  Company Number: CHPA2011US016133

PATIENT
  Sex: Female

DRUGS (4)
  1. PHENYLEPHRINE HCL [Suspect]
     Indication: SINUS CONGESTION
  2. PHENYLEPHRINE HCL [Suspect]
  3. PHENYLEPHRINE HCL [Suspect]
     Indication: NASAL CONGESTION
     Dosage: UNK, AT LEAST 10 TIMES PER DAY
     Route: 045
  4. PHENYLEPHRINE HCL [Suspect]
     Indication: SINUS HEADACHE
     Dosage: UNK, QD
     Route: 045

REACTIONS (9)
  - INSOMNIA [None]
  - WRONG TECHNIQUE IN DRUG USAGE PROCESS [None]
  - VISION BLURRED [None]
  - ASTHMA [None]
  - INCORRECT DRUG ADMINISTRATION DURATION [None]
  - OVERDOSE [None]
  - DRY MOUTH [None]
  - MOUTH BREATHING [None]
  - BRONCHITIS [None]
